FAERS Safety Report 6177091-3 (Version None)
Quarter: 2009Q2

REPORT INFORMATION
  Report Type: 
  Country: None (occurrence: None)
  Receive Date: 20090430
  Receipt Date: 20090430
  Transmission Date: 20091009
  Serious: Yes (Other)
  Sender: FDA-Public Use
  Company Number: None

PATIENT
  Age: 67 Year
  Sex: Male
  Weight: 116.5744 kg

DRUGS (8)
  1. ROSUVASTATIN CALCIUM [Suspect]
     Indication: CORONARY ARTERY DISEASE
     Dosage: 5 MG DAILY PO
     Route: 048
     Dates: start: 20081001, end: 20090101
  2. ROSUVASTATIN CALCIUM [Suspect]
     Indication: HYPERLIPIDAEMIA
     Dosage: 5 MG DAILY PO
     Route: 048
     Dates: start: 20081001, end: 20090101
  3. VYTORIN [Suspect]
     Indication: CORONARY ARTERY DISEASE
     Dosage: 10MG/20 MG DAILY PO
     Route: 048
     Dates: start: 20070901, end: 20080301
  4. VYTORIN [Suspect]
     Indication: HYPERLIPIDAEMIA
     Dosage: 10MG/20 MG DAILY PO
     Route: 048
     Dates: start: 20070901, end: 20080301
  5. GLIPIZIDE [Suspect]
  6. WELCHOL [Concomitant]
  7. BYSTOLIC [Concomitant]
  8. ASPIRIN [Concomitant]

REACTIONS (1)
  - MYALGIA [None]
